FAERS Safety Report 5074843-8 (Version None)
Quarter: 2006Q3

REPORT INFORMATION
  Report Type: 
  Country: None (occurrence: None)
  Receive Date: 20060804
  Receipt Date: 20060727
  Transmission Date: 20061208
  Serious: Yes (Hospitalization, Other)
  Sender: FDA-Public Use
  Company Number: 200613169BWH

PATIENT
  Age: 72 Year
  Sex: Female
  Weight: 52.1637 kg

DRUGS (23)
  1. NEXAVAR [Suspect]
     Indication: RENAL CELL CARCINOMA STAGE UNSPECIFIED
     Dosage: SEE IMAGE
     Route: 048
     Dates: start: 20060401, end: 20060501
  2. NEXAVAR [Suspect]
     Indication: RENAL CELL CARCINOMA STAGE UNSPECIFIED
     Dosage: SEE IMAGE
     Route: 048
     Dates: start: 20060515
  3. FLONASE [Concomitant]
  4. ZOCOR [Concomitant]
  5. PLAVIX [Concomitant]
  6. LISINOPRIL [Concomitant]
  7. SOTALOL HYDROCHLORIDE [Concomitant]
  8. ASPIRIN [Concomitant]
  9. OMEGA-3 [Concomitant]
  10. ZESTORETIC [Concomitant]
  11. TOPROL-XL [Concomitant]
  12. COQ10 [Concomitant]
  13. BECONASE [Concomitant]
  14. ESTRADIOL INJ [Concomitant]
  15. METROCREAM [Concomitant]
  16. BALANCED B COMPLEX [Concomitant]
  17. VITAMIN B-12 [Concomitant]
  18. MULTIVITAMIN [Concomitant]
  19. GARLIC [Concomitant]
  20. GINKO BILOBA [Concomitant]
  21. FLAX SEED OIL [Concomitant]
  22. GLUCOSAMINE CHONDROITIN [Concomitant]
  23. MILK THISTLE EXTRACT [Concomitant]

REACTIONS (15)
  - ABDOMINAL PAIN UPPER [None]
  - ALOPECIA [None]
  - ANOREXIA [None]
  - ASTHENIA [None]
  - BLOOD PRESSURE INCREASED [None]
  - CORONARY ARTERY OCCLUSION [None]
  - COUGH [None]
  - DIARRHOEA [None]
  - FACIAL PALSY [None]
  - FATIGUE [None]
  - PYREXIA [None]
  - RASH MACULAR [None]
  - SCAR [None]
  - SOMNOLENCE [None]
  - SPLENIC INFARCTION [None]
